FAERS Safety Report 9972412 (Version 1)
Quarter: 2014Q1

REPORT INFORMATION
  Report Type: Spontaneous
  Country: CA (occurrence: None)
  Receive Date: 20140304
  Receipt Date: 20140304
  Transmission Date: 20141002
  Serious: Yes (Death)
  Sender: FDA-Public Use
  Company Number: 2014P1001562

PATIENT
  Age: 75 Year
  Sex: Male

DRUGS (1)
  1. HEPARIN [Suspect]
     Route: 042
     Dates: start: 20120517, end: 20120522

REACTIONS (7)
  - Scrotal pain [None]
  - Penile necrosis [None]
  - Genital swelling [None]
  - Renal failure [None]
  - Heparin-induced thrombocytopenia [None]
  - Post procedural complication [None]
  - Penile haemorrhage [None]
